FAERS Safety Report 8194256-X (Version None)
Quarter: 2012Q1

REPORT INFORMATION
  Report Type: 
  Country: None (occurrence: None)
  Receive Date: 20120308
  Receipt Date: 20120207
  Transmission Date: 20120608
  Serious: Yes (Other)
  Sender: FDA-Public Use
  Company Number: US-ROCHE-GNE323858

PATIENT
  Sex: Female
  Weight: 68.554 kg

DRUGS (10)
  1. OMALIZUMAB [Suspect]
     Dates: start: 20111116
  2. OMALIZUMAB [Suspect]
     Dosage: 1ST TRIMESTER
     Dates: start: 20110815
  3. OMALIZUMAB [Suspect]
     Dosage: 8 WEEKS PRIOR TO CONCEPTION
     Dates: start: 20110620
  4. OMALIZUMAB [Suspect]
     Dates: start: 20110912
  5. SINGULAIR [Concomitant]
     Indication: ASTHMA
  6. SYMBICORT [Concomitant]
     Indication: ASTHMA
  7. VITAMIN AND MINERAL PRENATAL SUPPLEMENT W/ FOLIC ACID CAP [Concomitant]
  8. ALBUTEROL [Concomitant]
  9. OMALIZUMAB [Suspect]
     Indication: ASTHMA
     Dosage: UNKNOWN, MOST RECENT DOSE WAS 11  AUG 2011
     Route: 058
     Dates: start: 20110519
  10. OMALIZUMAB [Suspect]
     Dates: start: 20120130

REACTIONS (2)
  - GESTATIONAL DIABETES [None]
  - MATERNAL EXPOSURE DURING PREGNANCY [None]
